FAERS Safety Report 14028771 (Version 2)
Quarter: 2019Q2

REPORT INFORMATION
  Report Type: Spontaneous
  Country: US (occurrence: US)
  Receive Date: 20170930
  Receipt Date: 20190625
  Transmission Date: 20190711
  Serious: No
  Sender: FDA-Public Use
  Company Number: US-SA-2017SA100086

PATIENT
  Age: 60 Year
  Sex: Female

DRUGS (2)
  1. AUBAGIO [Suspect]
     Active Substance: TERIFLUNOMIDE
     Dosage: UNK
     Dates: start: 20170521
  2. AUBAGIO [Suspect]
     Active Substance: TERIFLUNOMIDE
     Dosage: UNK
     Dates: start: 201607

REACTIONS (9)
  - Hair texture abnormal [Unknown]
  - Dry skin [Unknown]
  - Headache [Unknown]
  - Back pain [Unknown]
  - Palpitations [Unknown]
  - Movement disorder [Unknown]
  - Speech disorder [Unknown]
  - Muscular weakness [Unknown]
  - Hypertension [Unknown]

NARRATIVE: CASE EVENT DATE: 201705
